FAERS Safety Report 4681248-8 (Version None)
Quarter: 2005Q2

REPORT INFORMATION
  Report Type: 
  Country: None (occurrence: None)
  Receive Date: 20050603
  Receipt Date: 20050523
  Transmission Date: 20051028
  Serious: Yes (Other)
  Sender: FDA-Public Use
  Company Number: JP-JNJFOC-20050505694

PATIENT
  Age: 25 Year
  Sex: Female

DRUGS (4)
  1. TAVANIC [Suspect]
     Indication: BRONCHITIS
     Route: 049
     Dates: start: 20050504, end: 20050506
  2. ACC [Concomitant]
     Indication: BRONCHITIS
     Route: 049
  3. SYMBICORT [Concomitant]
     Route: 055
  4. SYMBICORT [Concomitant]
     Indication: ASTHMA
     Route: 055

REACTIONS (1)
  - ANOSMIA [None]
